FAERS Safety Report 6743089-7 (Version None)
Quarter: 2010Q2

REPORT INFORMATION
  Report Type: 
  Country: None (occurrence: None)
  Receive Date: 20100527
  Receipt Date: 20100519
  Transmission Date: 20101027
  Serious: Yes (Other)
  Sender: FDA-Public Use
  Company Number: JP-JNJFOC-20091202365

PATIENT
  Sex: Female

DRUGS (9)
  1. TOPIRAMATE [Suspect]
     Indication: EPILEPSY
     Route: 048
  2. TOPIRAMATE [Suspect]
     Route: 048
  3. TOPIRAMATE [Suspect]
     Route: 048
  4. PHENOBARBITAL TAB [Concomitant]
     Indication: EPILEPSY
     Route: 048
  5. TEGRETOL [Concomitant]
     Indication: EPILEPSY
     Route: 048
  6. TEGRETOL [Concomitant]
     Route: 048
  7. ACETAZOLAMIDE [Concomitant]
     Indication: EPILEPSY
     Route: 048
  8. VITAMEDIN [Concomitant]
     Route: 048
  9. DIHYDROERGOTAMINE MESYLATE [Concomitant]
     Route: 048

REACTIONS (4)
  - HAEMATOCRIT DECREASED [None]
  - HAEMOGLOBIN DECREASED [None]
  - RED BLOOD CELL COUNT DECREASED [None]
  - WHITE BLOOD CELL COUNT DECREASED [None]
